FAERS Safety Report 7008778-8 (Version None)
Quarter: 2010Q3

REPORT INFORMATION
  Report Type: 
  Country: None (occurrence: None)
  Receive Date: 20100921
  Receipt Date: 20100901
  Transmission Date: 20110219
  Serious: No
  Sender: FDA-Public Use
  Company Number: 201007AGG00942

PATIENT
  Sex: Female

DRUGS (4)
  1. TIROFIBAN HYDROCHLORIDE (AGGRASTAT TIROFIBAN HCL) [Suspect]
     Indication: THROMBOSIS
     Dosage: SEE IMAGE
     Route: 013
  2. HEPARIN SODIUM [Concomitant]
  3. ASPIRIN [Concomitant]
  4. CLOPIDOGREL BISULFATE [Concomitant]

REACTIONS (3)
  - HEMIPARESIS [None]
  - OFF LABEL USE [None]
  - THROMBOSIS IN DEVICE [None]
